FAERS Safety Report 14822844 (Version 2)
Quarter: 2018Q2

REPORT INFORMATION
  Report Type: Spontaneous
  Country: TR (occurrence: TR)
  Receive Date: 20180427
  Receipt Date: 20180509
  Transmission Date: 20180711
  Serious: Yes (Other)
  Sender: FDA-Public Use
  Company Number: TR-GILEAD-2018-0334397

PATIENT
  Age: 23 Year
  Sex: Male

DRUGS (5)
  1. TEGRETOL [Interacting]
     Active Substance: CARBAMAZEPINE
     Indication: EPILEPSY
     Dosage: UNK
     Route: 065
     Dates: end: 201612
  2. STRIBILD [Suspect]
     Active Substance: COBICISTAT\ELVITEGRAVIR\EMTRICITABINE\TENOFOVIR DISOPROXIL FUMARATE
     Indication: HIV INFECTION
     Dosage: UNK
     Route: 065
     Dates: start: 201507
  3. TEGRETOL [Interacting]
     Active Substance: CARBAMAZEPINE
     Dosage: UNK
     Route: 065
     Dates: start: 201804
  4. KEPPRA [Concomitant]
     Active Substance: LEVETIRACETAM
     Indication: EPILEPSY
  5. PRIMIDONE. [Interacting]
     Active Substance: PRIMIDONE
     Indication: EPILEPSY
     Dosage: UNK
     Route: 065
     Dates: start: 201612, end: 201804

REACTIONS (2)
  - Drug interaction [Unknown]
  - Epilepsy [Unknown]
